FAERS Safety Report 4559194-X (Version None)
Quarter: 2005Q1

REPORT INFORMATION
  Report Type: 
  Country: None (occurrence: None)
  Receive Date: 20050124
  Receipt Date: 20050110
  Transmission Date: 20050727
  Serious: Yes (Hospitalization, Congenital Anomaly)
  Sender: FDA-Public Use
  Company Number: FR-JNJFOC-20050102024

PATIENT
  Sex: Female
  Weight: 2.81 kg

DRUGS (2)
  1. RISPERDAL [Suspect]
     Indication: SCHIZOPHRENIA
     Route: 015
  2. NOCTAMIDE [Concomitant]
     Route: 015

REACTIONS (1)
  - MULTIPLE CONGENITAL ABNORMALITIES [None]
